FAERS Safety Report 4356673-5 (Version None)
Quarter: 2004Q2

REPORT INFORMATION
  Report Type: 
  Country: None (occurrence: None)
  Receive Date: 20040507
  Receipt Date: 20040426
  Transmission Date: 20050107
  Serious: No
  Sender: FDA-Public Use
  Company Number: 20040400290

PATIENT
  Age: 66 Year
  Sex: Female

DRUGS (6)
  1. METOCLOPRAMIDE [Suspect]
     Indication: NAUSEA
     Dosage: 10 MG DAILY IV
     Route: 042
  2. METOCLOPRAMIDE [Suspect]
     Indication: NAUSEA
     Dosage: 10 MG DAILY IV
     Route: 042
  3. FENTANYL [Concomitant]
  4. THIOPENTAL SODIUM [Concomitant]
  5. ROCURONIUM [Concomitant]
  6. ISOFLURANE [Concomitant]

REACTIONS (3)
  - BLOOD PRESSURE SYSTOLIC INCREASED [None]
  - CARDIAC ARREST [None]
  - POST PROCEDURAL COMPLICATION [None]
